FAERS Safety Report 13997335 (Version 6)
Quarter: 2018Q1

REPORT INFORMATION
  Report Type: Spontaneous
  Country: NO (occurrence: NO)
  Receive Date: 20170921
  Receipt Date: 20180313
  Transmission Date: 20180508
  Serious: Yes (Hospitalization, Other)
  Sender: FDA-Public Use
  Company Number: NO-TEVA-806651ACC

PATIENT
  Age: 17 Year
  Sex: Male

DRUGS (21)
  1. SEROXAT [Suspect]
     Active Substance: PAROXETINE HYDROCHLORIDE
     Indication: DEPRESSION
     Dosage: 20 MILLIGRAM DAILY;
     Dates: start: 1998
  2. LAMICTAL [Suspect]
     Active Substance: LAMOTRIGINE
     Indication: PRODUCT USED FOR UNKNOWN INDICATION
     Route: 065
  3. ZYPREXA [Suspect]
     Active Substance: OLANZAPINE
     Dates: start: 2010
  4. LITHIONIT [Concomitant]
     Active Substance: LITHIUM SULFATE
     Dates: start: 2010
  5. SOBRIL [Concomitant]
     Active Substance: OXAZEPAM
     Indication: PRODUCT USED FOR UNKNOWN INDICATION
     Dosage: AS NEEDED
     Dates: start: 201505
  6. EFEXOR DEPOT [Suspect]
     Active Substance: VENLAFAXINE HYDROCHLORIDE
     Route: 065
     Dates: start: 201606, end: 20160725
  7. LITHIONIT [Concomitant]
     Active Substance: LITHIUM SULFATE
     Route: 065
     Dates: start: 201606
  8. EFEXOR DEPOT [Suspect]
     Active Substance: VENLAFAXINE HYDROCHLORIDE
  9. LITHIONIT [Concomitant]
     Active Substance: LITHIUM SULFATE
     Dates: start: 2010
  10. SEROQUEL [Suspect]
     Active Substance: QUETIAPINE FUMARATE
     Indication: PRODUCT USED FOR UNKNOWN INDICATION
     Route: 048
     Dates: start: 201606
  11. CIPRAMIL [Suspect]
     Active Substance: CITALOPRAM HYDROBROMIDE
     Indication: PRODUCT USED FOR UNKNOWN INDICATION
     Dosage: 60 MILLIGRAM DAILY;
     Dates: start: 2003, end: 2010
  12. LITHIONIT [Concomitant]
     Active Substance: LITHIUM SULFATE
     Dates: start: 2015
  13. EFEXOR DEPOT [Suspect]
     Active Substance: VENLAFAXINE HYDROCHLORIDE
     Dates: start: 201507, end: 201605
  14. CIPRALEX [Suspect]
     Active Substance: ESCITALOPRAM OXALATE
     Indication: PRODUCT USED FOR UNKNOWN INDICATION
     Dosage: DAILY
     Route: 065
     Dates: end: 201507
  15. CIPRAMIL [Suspect]
     Active Substance: CITALOPRAM HYDROBROMIDE
     Dosage: 10 MILLIGRAM DAILY; 10 MG, DAILY
     Dates: start: 2003
  16. SEROXAT [Suspect]
     Active Substance: PAROXETINE HYDROCHLORIDE
     Dates: start: 19960529, end: 19961002
  17. EFEXOR DEPOT [Suspect]
     Active Substance: VENLAFAXINE HYDROCHLORIDE
     Indication: DEPRESSION
     Route: 065
     Dates: start: 201104
  18. OLANZAPINE. [Suspect]
     Active Substance: OLANZAPINE
     Indication: PRODUCT USED FOR UNKNOWN INDICATION
     Route: 065
     Dates: start: 2010
  19. SEROQUEL [Suspect]
     Active Substance: QUETIAPINE FUMARATE
     Dates: end: 2010
  20. ORFIRIL [Suspect]
     Active Substance: VALPROATE SODIUM
     Indication: PRODUCT USED FOR UNKNOWN INDICATION
     Route: 065
     Dates: start: 2010
  21. VALPROAT [Suspect]
     Active Substance: VALPROATE SODIUM
     Indication: PRODUCT USED FOR UNKNOWN INDICATION
     Dosage: INCREASING DOSE
     Dates: start: 2010

REACTIONS (25)
  - Irritability [Recovered/Resolved]
  - Mania [Recovered/Resolved]
  - Logorrhoea [Recovered/Resolved]
  - Drug abuse [Recovered/Resolved]
  - Malaise [Recovered/Resolved]
  - Agitation [Recovered/Resolved]
  - Impaired work ability [Recovered/Resolved]
  - Bipolar disorder [Recovered/Resolved]
  - Aggression [Recovered/Resolved]
  - Personality disorder [Recovered/Resolved]
  - Dizziness [Recovered/Resolved]
  - Memory impairment [Recovered/Resolved]
  - Disturbance in social behaviour [Recovered/Resolved]
  - Disturbance in attention [Recovered/Resolved]
  - Quality of life decreased [Recovered/Resolved]
  - Drug ineffective [Unknown]
  - Alcohol abuse [Recovered/Resolved]
  - Restlessness [Recovered/Resolved]
  - Mania [Recovered/Resolved]
  - Aggression [Recovered/Resolved]
  - Hypomania [Recovered/Resolved]
  - Depression [Recovered/Resolved]
  - Judgement impaired [Recovered/Resolved]
  - Drug abuse [Recovered/Resolved]
  - Derealisation [Recovered/Resolved]

NARRATIVE: CASE EVENT DATE: 1995
